FAERS Safety Report 18678556 (Version 1)
Quarter: 2020Q4

REPORT INFORMATION
  Report Type: Report from Study
  Country: US (occurrence: US)
  Receive Date: 20201230
  Receipt Date: 20201230
  Transmission Date: 20210114
  Serious: Yes (Other)
  Sender: FDA-Public Use
  Company Number: US-AUROBINDO-AUR-APL-2020-063457

PATIENT
  Age: 57 Year
  Sex: Female

DRUGS (5)
  1. MOXIFLOXACIN OPHTHALMIC SOLUTION USP 0.5 % W/V [Suspect]
     Active Substance: MOXIFLOXACIN
     Indication: MYCOBACTERIUM ABSCESSUS INFECTION
     Dosage: UNK UNK, FOUR TIMES/DAY
     Route: 065
  2. AMIKACIN. [Suspect]
     Active Substance: AMIKACIN
     Indication: MYCOBACTERIUM ABSCESSUS INFECTION
     Dosage: 1 DROP EVERY HOUR OS
     Route: 061
  3. CLARITHROMYCIN. [Suspect]
     Active Substance: CLARITHROMYCIN
     Indication: MYCOBACTERIUM ABSCESSUS INFECTION
     Dosage: UNK
     Route: 065
  4. AMIKACIN. [Suspect]
     Active Substance: AMIKACIN
     Indication: MYCOBACTERIUM ABSCESSUS INFECTION
     Dosage: 0.4 MG/0.1 ML
  5. AMIKACIN. [Suspect]
     Active Substance: AMIKACIN
     Dosage: 15 MILLIGRAM/KILOGRAM, ONCE A DAY
     Route: 042

REACTIONS (2)
  - Scleral deposits [Unknown]
  - Retinal detachment [Unknown]
